FAERS Safety Report 5590638-0 (Version None)
Quarter: 2008Q1

REPORT INFORMATION
  Report Type: 
  Country: None (occurrence: None)
  Receive Date: 20080114
  Receipt Date: 20080103
  Transmission Date: 20080703
  Serious: Yes (Other)
  Sender: FDA-Public Use
  Company Number: ES-MERCK-0711ESP00002

PATIENT
  Age: 60 Year
  Sex: Male

DRUGS (3)
  1. TIMOPTIC [Suspect]
     Indication: GLAUCOMA
     Route: 047
     Dates: start: 20040101, end: 20070615
  2. BRIMONIDINE TARTRATE AND TIMOLOL MALEATE [Concomitant]
     Indication: GLAUCOMA
     Route: 047
     Dates: start: 20070313, end: 20070101
  3. TRAVOPROST [Concomitant]
     Indication: GLAUCOMA
     Route: 047
     Dates: start: 20070313

REACTIONS (2)
  - BLEPHARITIS [None]
  - RETINAL DETACHMENT [None]
